FAERS Safety Report 25257762 (Version 1)
Quarter: 2025Q2

REPORT INFORMATION
  Report Type: Spontaneous
  Country: QA (occurrence: QA)
  Receive Date: 20250430
  Receipt Date: 20250430
  Transmission Date: 20250716
  Serious: Yes (Death, Hospitalization, Other)
  Sender: RANBAXY
  Company Number: QA-SUN PHARMACEUTICAL INDUSTRIES LTD-2025R1-505484

PATIENT
  Age: 40 Year
  Sex: Male

DRUGS (4)
  1. ACYCLOVIR [Suspect]
     Active Substance: ACYCLOVIR
     Indication: Herpes simplex
     Route: 065
  2. METHYLPREDNISOLONE [Suspect]
     Active Substance: METHYLPREDNISOLONE
     Indication: Haemophagocytic lymphohistiocytosis
     Route: 042
  3. EMAPALUMAB [Suspect]
     Active Substance: EMAPALUMAB
     Indication: Haemophagocytic lymphohistiocytosis
     Route: 065
  4. ETOPOSIDE [Suspect]
     Active Substance: ETOPOSIDE
     Indication: Haemophagocytic lymphohistiocytosis
     Route: 065

REACTIONS (1)
  - Condition aggravated [Fatal]
